FAERS Safety Report 7605280-7 (Version None)
Quarter: 2011Q3

REPORT INFORMATION
  Report Type: 
  Country: None (occurrence: None)
  Receive Date: 20110705
  Receipt Date: 20110621
  Transmission Date: 20111222
  Serious: Yes (Other)
  Sender: FDA-Public Use
  Company Number: FK201101263

PATIENT
  Age: 12 Year
  Sex: Female

DRUGS (4)
  1. METHOTREXATE [Suspect]
     Indication: BONE SARCOMA
     Dosage: 12000 MG/M2
     Dates: start: 20080601
  2. CISPLATIN [Suspect]
     Indication: BONE SARCOMA
     Dates: start: 20080601
  3. IFOSFAMIDE [Suspect]
     Indication: BONE SARCOMA
     Dates: start: 20080801
  4. DOXORUBICIN HYDROCHLORIDE [Suspect]
     Indication: BONE SARCOMA
     Dates: start: 20080601

REACTIONS (3)
  - TIBIA FRACTURE [None]
  - OSTEOPOROTIC FRACTURE [None]
  - GREENSTICK FRACTURE [None]
